FAERS Safety Report 20659122 (Version 1)
Quarter: 2022Q1

REPORT INFORMATION
  Report Type: Report from Study
  Country: US (occurrence: US)
  Receive Date: 20220331
  Receipt Date: 20220331
  Transmission Date: 20220423
  Serious: Yes (Life-Threatening, Other)
  Sender: FDA-Public Use
  Company Number: US-GILEAD-2022-0575059

PATIENT

DRUGS (2)
  1. AXICABTAGENE CILOLEUCEL [Suspect]
     Active Substance: AXICABTAGENE CILOLEUCEL
     Indication: Splenic marginal zone lymphoma
     Route: 065
  2. ANAKINRA [Concomitant]
     Active Substance: ANAKINRA
     Dosage: 200 MG, TID (D14)
     Route: 065

REACTIONS (1)
  - Immune effector cell-associated neurotoxicity syndrome [Recovered/Resolved]
